FAERS Safety Report 4883081-0 (Version None)
Quarter: 2005Q4

REPORT INFORMATION
  Report Type: 
  Country: None (occurrence: None)
  Receive Date: 20051201
  Receipt Date: 20050927
  Transmission Date: 20060501
  Serious: No
  Sender: FDA-Public Use
  Company Number: 2005PV002505

PATIENT
  Age: 57 Year
  Sex: Female

DRUGS (25)
  1. BYETTA [Suspect]
     Dosage: 5 MCG;BID;SC
     Route: 058
     Dates: start: 20050927, end: 20050927
  2. VICODIN [Concomitant]
  3. ASPIRIN [Concomitant]
  4. CALTRATE [Concomitant]
  5. LANTUS [Concomitant]
  6. NOVOLOG [Concomitant]
  7. TIAZAC [Concomitant]
  8. SYNTHROID [Concomitant]
  9. MONOPRIL [Concomitant]
  10. LASIX [Concomitant]
  11. SLOW-K [Concomitant]
  12. NIASPAN [Concomitant]
  13. GLUCOPHAGE XR [Concomitant]
  14. PRANDIN [Concomitant]
  15. LUNESTA [Concomitant]
  16. SULINDAC [Concomitant]
  17. FLEXERIL [Concomitant]
  18. ALLERGY INJ [Concomitant]
  19. DARVOCET [Concomitant]
  20. ALLOPURINOL [Concomitant]
  21. PLAVIX [Concomitant]
  22. PRAVACHOL [Concomitant]
  23. COREG [Concomitant]
  24. NASACORT [Concomitant]
  25. NITROGLYCERIN [Concomitant]

REACTIONS (3)
  - HYPOAESTHESIA ORAL [None]
  - OROPHARYNGEAL SWELLING [None]
  - SENSATION OF FOREIGN BODY [None]
